FAERS Safety Report 7382524-0 (Version None)
Quarter: 2011Q1

REPORT INFORMATION
  Report Type: 
  Country: None (occurrence: None)
  Receive Date: 20110329
  Receipt Date: 20110323
  Transmission Date: 20110831
  Serious: Yes (Other)
  Sender: FDA-Public Use
  Company Number: JP-BAYER-201015178BYL

PATIENT
  Sex: Male

DRUGS (3)
  1. NEXAVAR [Suspect]
     Indication: HEPATIC NEOPLASM MALIGNANT
     Dosage: 400 MG (DAILY DOSE), , ORAL
     Route: 048
     Dates: start: 20100624, end: 20100707
  2. NEXAVAR [Suspect]
     Dosage: 400 MG, QD
     Route: 048
     Dates: start: 20101014, end: 20101201
  3. NEXAVAR [Suspect]
     Route: 048
     Dates: start: 20100708, end: 20101013

REACTIONS (4)
  - ASCITES [None]
  - JAUNDICE [None]
  - HYPOALBUMINAEMIA [None]
  - HEPATIC FAILURE [None]
